FAERS Safety Report 8357917-5 (Version None)
Quarter: 2012Q2

REPORT INFORMATION
  Report Type: 
  Country: None (occurrence: None)
  Receive Date: 20120514
  Receipt Date: 20120507
  Transmission Date: 20120825
  Serious: Yes (Hospitalization, Other)
  Sender: FDA-Public Use
  Company Number: US-TEVA-336953USA

PATIENT
  Age: 65 Year
  Sex: Female

DRUGS (9)
  1. LISINOPRIL [Concomitant]
  2. CALCIUM [Concomitant]
  3. PRILOSEC [Concomitant]
  4. METOPROLOL TARTRATE [Concomitant]
  5. FUROSEMIDE [Concomitant]
  6. PRAVASTATIN [Concomitant]
  7. PROVIGIL [Suspect]
     Route: 048
  8. ACETYLSALICYLIC ACID SRT [Concomitant]
  9. BACLOFEN [Concomitant]

REACTIONS (5)
  - CEREBROVASCULAR ACCIDENT [None]
  - TOOTH FRACTURE [None]
  - ARTHRALGIA [None]
  - OFF LABEL USE [None]
  - CORONARY ARTERY OCCLUSION [None]
